FAERS Safety Report 21980888 (Version 1)
Quarter: 2023Q1

REPORT INFORMATION
  Report Type: Spontaneous
  Country: BR (occurrence: BR)
  Receive Date: 20230211
  Receipt Date: 20230211
  Transmission Date: 20230418
  Serious: Yes (Other)
  Sender: FDA-Public Use
  Company Number: BR-TEVA BRAZIL-2023-BR-2853343

PATIENT
  Age: 28 Year
  Sex: Female

DRUGS (4)
  1. NUVIGIL [Suspect]
     Active Substance: ARMODAFINIL
     Indication: Depression
     Route: 048
     Dates: start: 202206
  2. NUVIGIL [Suspect]
     Active Substance: ARMODAFINIL
     Indication: Thermal burn
  3. ZOLPIDEM TARTRATE [Concomitant]
     Active Substance: ZOLPIDEM TARTRATE
     Indication: Product used for unknown indication
  4. BRINTELLIX [Concomitant]
     Active Substance: VORTIOXETINE HYDROBROMIDE
     Indication: Product used for unknown indication

REACTIONS (5)
  - Adjustment disorder with depressed mood [Not Recovered/Not Resolved]
  - Loss of personal independence in daily activities [Not Recovered/Not Resolved]
  - Frustration tolerance decreased [Unknown]
  - Product use in unapproved indication [Unknown]
  - Product supply issue [Unknown]

NARRATIVE: CASE EVENT DATE: 20220601
